FAERS Safety Report 13520712 (Version 1)
Quarter: 2017Q2

REPORT INFORMATION
  Report Type: Spontaneous
  Country: US (occurrence: US)
  Receive Date: 20170508
  Receipt Date: 20170508
  Transmission Date: 20170830
  Serious: No
  Sender: FDA-Public Use
  Company Number: US-TEVA-708948USA

PATIENT
  Sex: Male

DRUGS (1)
  1. ACITRETIN. [Suspect]
     Active Substance: ACITRETIN
     Indication: LICHEN PLANUS
     Route: 048

REACTIONS (2)
  - Rash vesicular [Unknown]
  - Therapeutic response decreased [Unknown]
